FAERS Safety Report 8494957-X (Version None)
Quarter: 2012Q3

REPORT INFORMATION
  Report Type: 
  Country: None (occurrence: None)
  Receive Date: 20120709
  Receipt Date: 20120629
  Transmission Date: 20120928
  Serious: Yes (Other)
  Sender: FDA-Public Use
  Company Number: GB-BRISTOL-MYERS SQUIBB COMPANY-16726549

PATIENT
  Sex: Female

DRUGS (1)
  1. IPILIMUMAB [Suspect]
     Dosage: 1DF:5 MG/ML(CONCENTRATE FOR SOLUTION FOR INFUSION) NO OF DOSES:3

REACTIONS (1)
  - VITH NERVE DISORDER [None]
